FAERS Safety Report 7296486-8 (Version None)
Quarter: 2011Q1

REPORT INFORMATION
  Report Type: 
  Country: None (occurrence: None)
  Receive Date: 20110216
  Receipt Date: 20110202
  Transmission Date: 20110831
  Serious: Yes (Other)
  Sender: FDA-Public Use
  Company Number: PHHY2011DE08707

PATIENT
  Sex: Male

DRUGS (1)
  1. GLEEVEC [Suspect]
     Dosage: 400 MG,DAILY
     Route: 048
     Dates: start: 20020401

REACTIONS (3)
  - SYNCOPE [None]
  - CONGESTIVE CARDIOMYOPATHY [None]
  - CARDIAC FAILURE [None]
